FAERS Safety Report 4413804-6 (Version None)
Quarter: 2004Q3

REPORT INFORMATION
  Report Type: 
  Country: None (occurrence: None)
  Receive Date: 20040728
  Receipt Date: 20040714
  Transmission Date: 20050211
  Serious: Yes (Other)
  Sender: FDA-Public Use
  Company Number: US_0404102541

PATIENT
  Sex: Female

DRUGS (3)
  1. GEMCITABINE HYDROCHLORIDE-IV (GEMCITABINE) [Suspect]
     Indication: BREAST CANCER
     Dosage: 1000 MG/M2 OTHER
     Dates: start: 20020624, end: 20021025
  2. EPIRUBICIN [Suspect]
     Indication: BREAST CANCER
     Dosage: 90 MG/M2 OTHER
     Dates: start: 20020624, end: 20021022
  3. PACLITAXEL [Suspect]
     Indication: BREAST CANCER
     Dosage: 175 MG/M2 OTHER
     Dates: start: 20020624, end: 20021022

REACTIONS (5)
  - ACUTE LYMPHOCYTIC LEUKAEMIA [None]
  - DRUG TOXICITY [None]
  - METASTASES TO LYMPH NODES [None]
  - NEUTROPENIA [None]
  - THROMBOCYTOPENIA [None]
